FAERS Safety Report 4996419-0 (Version None)
Quarter: 2006Q2

REPORT INFORMATION
  Report Type: 
  Country: None (occurrence: None)
  Receive Date: 20060505
  Receipt Date: 20060426
  Transmission Date: 20061013
  Serious: Yes (Life-Threatening)
  Sender: FDA-Public Use
  Company Number: 2006046409

PATIENT
  Age: 48 Year
  Sex: Male
  Weight: 48 kg

DRUGS (3)
  1. SOLU-MEDROL [Suspect]
     Indication: ILL-DEFINED DISORDER
     Dosage: 40 MG, INTRAVENOUS
     Route: 042
     Dates: start: 20050908
  2. CISPLATIN [Suspect]
     Indication: TONGUE NEOPLASM MALIGNANT STAGE UNSPECIFIED
     Dosage: 2200 MG, INTRAVENOUS
     Route: 042
     Dates: start: 20050908
  3. FLUOROURACIL [Concomitant]

REACTIONS (5)
  - CONVULSION [None]
  - HYPOKALAEMIA [None]
  - HYPOMAGNESAEMIA [None]
  - LOSS OF CONSCIOUSNESS [None]
  - TORSADE DE POINTES [None]
